FAERS Safety Report 17816906 (Version 1)
Quarter: 2020Q2

REPORT INFORMATION
  Report Type: Spontaneous
  Country: US (occurrence: US)
  Receive Date: 20200522
  Receipt Date: 20200522
  Transmission Date: 20200714
  Serious: No
  Sender: FDA-Public Use
  Company Number: US-FDC LIMITED-2019RIS00282

PATIENT
  Sex: Female
  Weight: 74.83 kg

DRUGS (4)
  1. LATANOPROST (GREENSTONE) [Suspect]
     Active Substance: LATANOPROST
     Indication: OPEN ANGLE GLAUCOMA
     Dosage: 1 DROP, 1X/DAY TO EACH EYE IN THE PM
  2. BRIMONIDINE [Suspect]
     Active Substance: BRIMONIDINE TARTRATE
     Indication: OPEN ANGLE GLAUCOMA
  3. UNSPECIFIED ^ALL KINDS^ [Concomitant]
  4. TIMOLOL MALEATE. [Suspect]
     Active Substance: TIMOLOL MALEATE
     Indication: OPEN ANGLE GLAUCOMA
     Dosage: 1 DROP, 1X/DAY TO EACH EYE IN THE AM

REACTIONS (1)
  - Visual impairment [Not Recovered/Not Resolved]
